FAERS Safety Report 15409565 (Version 1)
Quarter: 2018Q3

REPORT INFORMATION
  Report Type: Spontaneous
  Country: US (occurrence: US)
  Receive Date: 20180920
  Receipt Date: 20180920
  Transmission Date: 20181010
  Serious: Yes (Death, Hospitalization)
  Sender: FDA-Public Use
  Company Number: US-ACTELION-A-NJ2018-178796

PATIENT
  Age: 6 Year
  Sex: Female

DRUGS (2)
  1. REVATIO [Concomitant]
     Active Substance: SILDENAFIL CITRATE
     Dosage: 10 MG/ML, TID
  2. TRACLEER [Suspect]
     Active Substance: BOSENTAN
     Indication: PULMONARY HYPERTENSION
     Dosage: UNK UNK, BID
     Route: 048
     Dates: end: 20180908

REACTIONS (3)
  - Acute respiratory failure [Fatal]
  - Pneumonia staphylococcal [Unknown]
  - Septic shock [Fatal]

NARRATIVE: CASE EVENT DATE: 20180908
